FAERS Safety Report 12669115 (Version 1)
Quarter: 2016Q3

REPORT INFORMATION
  Report Type: Spontaneous
  Country: US (occurrence: US)
  Receive Date: 20160819
  Receipt Date: 20160819
  Transmission Date: 20161109
  Serious: Yes (Hospitalization, Other)
  Sender: FDA-Public Use
  Company Number: US-BAYER-2016-160728

PATIENT
  Age: 21 Year
  Sex: Female

DRUGS (1)
  1. MIRENA [Suspect]
     Active Substance: LEVONORGESTREL
     Indication: CONTRACEPTION
     Dosage: 20 MCG/24HR, CONT
     Route: 015
     Dates: start: 2014

REACTIONS (11)
  - Complication of device insertion [None]
  - Complication of device removal [None]
  - Appendix disorder [None]
  - Pelvic pain [Not Recovered/Not Resolved]
  - Device difficult to use [None]
  - Loss of consciousness [Recovered/Resolved]
  - Ovarian cyst [None]
  - Contraindicated device used [None]
  - Device issue [None]
  - Loss of consciousness [Recovered/Resolved]
  - Embedded device [None]

NARRATIVE: CASE EVENT DATE: 2014
